FAERS Safety Report 23404795 (Version 2)
Quarter: 2024Q1

REPORT INFORMATION
  Report Type: Spontaneous
  Country: CO (occurrence: CO)
  Receive Date: 20240116
  Receipt Date: 20240301
  Transmission Date: 20240409
  Serious: No
  Sender: FDA-Public Use
  Company Number: CO-PFIZER INC-PV202400002491

PATIENT
  Sex: Female

DRUGS (1)
  1. GENOTROPIN [Suspect]
     Active Substance: SOMATROPIN
     Dosage: 1.0 MG - 1.2 MG ALTERNATELY
     Route: 058

REACTIONS (1)
  - Device leakage [Unknown]
